FAERS Safety Report 5505161-9 (Version None)
Quarter: 2007Q4

REPORT INFORMATION
  Report Type: 
  Country: None (occurrence: None)
  Receive Date: 20071102
  Receipt Date: 20071025
  Transmission Date: 20080405
  Serious: Yes (Other)
  Sender: FDA-Public Use
  Company Number: US-ASTRAZENECA-2007UW01701

PATIENT
  Age: 14489 Day
  Sex: Female
  Weight: 85.9 kg

DRUGS (11)
  1. SEROQUEL [Suspect]
     Indication: DEPRESSION
     Dosage: 600 TO 900 MG
     Route: 048
     Dates: start: 19991001, end: 20060601
  2. HALOPERIDOL [Concomitant]
     Dates: start: 20060201
  3. BUSPAR [Concomitant]
     Dates: start: 20011118, end: 20060518
  4. HYDROXYZINE [Concomitant]
     Dosage: 25 MG TO 50 MG
     Dates: start: 20010126, end: 20060518
  5. TEGRETOL [Concomitant]
     Dates: start: 20061101
  6. LITHIUM [Concomitant]
     Dates: start: 19990101
  7. KLONOPIN [Concomitant]
     Dates: start: 19920101, end: 19980101
  8. KLONOPIN [Concomitant]
     Dates: start: 20070401
  9. PAXIL [Concomitant]
  10. PROPRANOLOL [Concomitant]
  11. RANITIDINE [Concomitant]

REACTIONS (10)
  - ABDOMINAL DISTENSION [None]
  - AGORAPHOBIA [None]
  - BLOOD TRIGLYCERIDES INCREASED [None]
  - DIABETIC KETOACIDOSIS [None]
  - GASTRITIS [None]
  - PANCREATITIS ACUTE [None]
  - RENAL DISORDER [None]
  - SKIN DISCOLOURATION [None]
  - TYPE 2 DIABETES MELLITUS [None]
  - WEIGHT INCREASED [None]
